FAERS Safety Report 4386883-2 (Version None)
Quarter: 2004Q2

REPORT INFORMATION
  Report Type: 
  Country: None (occurrence: None)
  Receive Date: 20040623
  Receipt Date: 20040603
  Transmission Date: 20050107
  Serious: Yes (Hospitalization)
  Sender: FDA-Public Use
  Company Number: USA040669253

PATIENT
  Sex: Female

DRUGS (5)
  1. HUMATROPE [Suspect]
     Indication: HYPOTHALAMO-PITUITARY DISORDERS
     Dosage: 6 MG
     Dates: start: 20040601
  2. THYROID TAB [Concomitant]
  3. LEVOXYL [Concomitant]
  4. PREVACID [Concomitant]
  5. ZOCOR [Concomitant]

REACTIONS (2)
  - DIVERTICULITIS [None]
  - PHARMACEUTICAL PRODUCT COMPLAINT [None]
